FAERS Safety Report 14131819 (Version 1)
Quarter: 2017Q4

REPORT INFORMATION
  Report Type: Spontaneous
  Country: US (occurrence: US)
  Receive Date: 20171026
  Receipt Date: 20171026
  Transmission Date: 20180321
  Serious: Yes (Other)
  Sender: FDA-Public Use
  Company Number: US-INSYS THERAPEUTICS, INC-INS201710-000612

PATIENT
  Sex: Female

DRUGS (4)
  1. SUBSYS [Suspect]
     Active Substance: FENTANYL
     Indication: PAIN
     Route: 060
     Dates: start: 201501, end: 201512
  2. SUBSYS [Suspect]
     Active Substance: FENTANYL
     Route: 060
     Dates: start: 201404
  3. ACETAMINOPHEN. [Concomitant]
     Active Substance: ACETAMINOPHEN
     Indication: PAIN
  4. HYDROCODONE [Concomitant]
     Active Substance: HYDROCODONE
     Indication: PAIN

REACTIONS (10)
  - Drug use disorder [Unknown]
  - Cognitive disorder [Unknown]
  - Impaired work ability [Unknown]
  - Injury [Unknown]
  - Drug withdrawal syndrome [Unknown]
  - Depression [Unknown]
  - Tremor [Unknown]
  - Decreased appetite [Unknown]
  - Insomnia [Unknown]
  - Vomiting [Unknown]
